FAERS Safety Report 9659512 (Version 1)
Quarter: 2013Q4

REPORT INFORMATION
  Report Type: Report from Study
  Country: US (occurrence: US)
  Receive Date: 20131031
  Receipt Date: 20131031
  Transmission Date: 20140711
  Serious: Yes (Hospitalization)
  Sender: FDA-Public Use
  Company Number: PHEH2013US022651

PATIENT
  Age: 22 Year
  Sex: Female

DRUGS (1)
  1. TOBI [Suspect]
     Dosage: 112 MG, BID

REACTIONS (1)
  - Infection [Unknown]
